FAERS Safety Report 15116691 (Version 2)
Quarter: 2019Q3

REPORT INFORMATION
  Report Type: Spontaneous
  Country: FR (occurrence: FR)
  Receive Date: 20180706
  Receipt Date: 20190906
  Transmission Date: 20191004
  Serious: Yes (Hospitalization)
  Sender: FDA-Public Use
  Company Number: FR-ELI_LILLY_AND_COMPANY-FR201806013437

PATIENT
  Age: 63 Year
  Sex: Female
  Weight: 60.4 kg

DRUGS (3)
  1. GEMZAR [Suspect]
     Active Substance: GEMCITABINE HYDROCHLORIDE
     Indication: ADENOCARCINOMA
     Dosage: 5130 MG, UNKNOWN
     Route: 042
     Dates: start: 20180514, end: 20180528
  2. XELODA [Suspect]
     Active Substance: CAPECITABINE
     Indication: ADENOCARCINOMA
     Dosage: 1350 MG/M2, DAILY
     Route: 048
     Dates: start: 20180514, end: 20180527
  3. MAG 2                              /00454301/ [Suspect]
     Active Substance: MAGNESIUM CARBONATE
     Indication: PRODUCT USED FOR UNKNOWN INDICATION
     Dosage: UNK UNK, UNKNOWN
     Route: 048
     Dates: end: 20180616

REACTIONS (6)
  - Weight decreased [Not Recovered/Not Resolved]
  - Dehydration [Recovering/Resolving]
  - Hypokalaemia [Recovering/Resolving]
  - Palmar-plantar erythrodysaesthesia syndrome [Recovering/Resolving]
  - Diarrhoea [Recovering/Resolving]
  - Overdose [Unknown]

NARRATIVE: CASE EVENT DATE: 20180514
